FAERS Safety Report 8906748 (Version 1)
Quarter: 2012Q4

REPORT INFORMATION
  Report Type: 
  Country: US (occurrence: US)
  Receive Date: 20121114
  Receipt Date: 20121114
  Transmission Date: 20130627
  Serious: Yes (Death, Hospitalization, Other)
  Sender: FDA-Public Use
  Company Number: US-ACTELION-A-CH2012-74327

PATIENT
  Age: 62 Year
  Sex: Female

DRUGS (1)
  1. VELETRI [Suspect]
     Indication: PORTOPULMONARY HYPERTENSION
     Dosage: 120 ng/kg, UNK
     Route: 041

REACTIONS (14)
  - Haemorrhage [Fatal]
  - Portal hypertensive gastropathy [Unknown]
  - Pancytopenia [Not Recovered/Not Resolved]
  - Haematemesis [Fatal]
  - Melaena [Fatal]
  - Splenomegaly [Unknown]
  - Condition aggravated [Unknown]
  - Biopsy bone marrow [Unknown]
  - Haemoglobin decreased [Not Recovered/Not Resolved]
  - Platelet count decreased [Not Recovered/Not Resolved]
  - White blood cell count decreased [Not Recovered/Not Resolved]
  - Ascites [Unknown]
  - Blood product transfusion [Not Recovered/Not Resolved]
  - Portal shunt [Unknown]
